FAERS Safety Report 9296622 (Version 3)
Quarter: 2013Q4

REPORT INFORMATION
  Report Type: Spontaneous
  Country: US (occurrence: None)
  Receive Date: 20130515
  Receipt Date: 20131121
  Transmission Date: 20140711
  Serious: Yes (Hospitalization)
  Sender: FDA-Public Use
  Company Number: 2013SGN00252

PATIENT
  Age: 65 Year
  Sex: Male
  Weight: 86.1 kg

DRUGS (3)
  1. BRENTUXIMAB VEDOTIN (BRENTUXIMAB VEDOTIN) INJECTION [Suspect]
     Indication: NON-HODGKIN^S LYMPHOMA
     Route: 042
     Dates: start: 20130418, end: 20130418
  2. DIGOXIN (DIGOXIN) [Concomitant]
  3. ACETAMINOPHEN (ACETAMINOPHEN) [Concomitant]

REACTIONS (4)
  - Febrile neutropenia [None]
  - Pneumonia [None]
  - Superinfection [None]
  - Molluscipoxvirus test positive [None]
